FAERS Safety Report 5382680-X (Version None)
Quarter: 2007Q3

REPORT INFORMATION
  Report Type: 
  Country: None (occurrence: None)
  Receive Date: 20070710
  Receipt Date: 20070629
  Transmission Date: 20080115
  Serious: Yes (Other)
  Sender: FDA-Public Use
  Company Number: BR-JNJFOC-20070501241

PATIENT
  Age: 26 Year
  Sex: Female
  Weight: 70 kg

DRUGS (4)
  1. LEVAQUIN [Suspect]
     Indication: SINUSITIS
     Route: 048
  2. ALLEGRA [Concomitant]
     Indication: SINUSITIS
     Route: 048
  3. COUGH MEDICATION [Concomitant]
     Indication: COUGH
     Route: 048
  4. UNSPECIFIED PSYCHOTROPIC DRUG [Concomitant]
     Route: 065

REACTIONS (5)
  - CHEST PAIN [None]
  - DYSPNOEA [None]
  - FEELING COLD [None]
  - INSOMNIA [None]
  - TACHYCARDIA [None]
